FAERS Safety Report 9965989 (Version 1)
Quarter: 2014Q1

REPORT INFORMATION
  Report Type: Report from Study
  Country: US (occurrence: US)
  Receive Date: 20140305
  Receipt Date: 20140305
  Transmission Date: 20141002
  Serious: No
  Sender: FDA-Public Use
  Company Number: US-ABBVIE-13P-163-1127367-00

PATIENT
  Age: 61 Year
  Sex: Female
  Weight: 65.83 kg

DRUGS (7)
  1. HUMIRA [Suspect]
     Indication: COLITIS ULCERATIVE
     Dosage: INITIAL DOSE
     Dates: start: 201304, end: 201304
  2. HUMIRA [Suspect]
     Dosage: ON DAY 15
     Dates: start: 2013, end: 2013
  3. HUMIRA [Suspect]
     Dates: start: 2013
  4. MERCAPTOPURINE [Concomitant]
     Indication: COLITIS ULCERATIVE
  5. ASACOL [Concomitant]
     Indication: COLITIS ULCERATIVE
  6. SYNTHROID [Concomitant]
     Indication: HYPOTHYROIDISM
  7. VALTREX [Concomitant]
     Indication: HERPES VIRUS INFECTION

REACTIONS (8)
  - Asthenia [Not Recovered/Not Resolved]
  - Frequent bowel movements [Not Recovered/Not Resolved]
  - Haematochezia [Not Recovered/Not Resolved]
  - Drug ineffective [Not Recovered/Not Resolved]
  - Rash [Not Recovered/Not Resolved]
  - Papilloma [Not Recovered/Not Resolved]
  - Smear cervix abnormal [Not Recovered/Not Resolved]
  - Rash pustular [Unknown]
